FAERS Safety Report 21005219 (Version 4)
Quarter: 2022Q4

REPORT INFORMATION
  Report Type: Spontaneous
  Country: FR (occurrence: FR)
  Receive Date: 20220624
  Receipt Date: 20221108
  Transmission Date: 20230112
  Serious: Yes (Hospitalization)
  Sender: FDA-Public Use
  Company Number: FR-NOVARTISPH-NVSC2022FR142531

PATIENT
  Age: 50 Year
  Sex: Male
  Weight: 64.3 kg

DRUGS (19)
  1. CLARITHROMYCIN [Interacting]
     Active Substance: CLARITHROMYCIN
     Indication: Angina pectoris
     Dosage: 500 MG (0.5 DAY), BID
     Route: 048
     Dates: start: 20191231, end: 20200105
  2. CLARITHROMYCIN [Interacting]
     Active Substance: CLARITHROMYCIN
     Indication: Infection
  3. TACROLIMUS [Interacting]
     Active Substance: TACROLIMUS
     Indication: Renal transplant
     Dosage: 6 MG, TOTAL DAILY DOSE
     Route: 065
     Dates: start: 20160412
  4. TACROLIMUS [Interacting]
     Active Substance: TACROLIMUS
     Dosage: 9 MG, TOTAL DAILY DOSE
     Route: 065
     Dates: start: 20160416
  5. TACROLIMUS [Interacting]
     Active Substance: TACROLIMUS
     Dosage: 8 MG, TOTAL DAILY DOSE
     Route: 065
     Dates: start: 20160417
  6. TACROLIMUS [Interacting]
     Active Substance: TACROLIMUS
     Dosage: 10 MG, TOTAL DAILY DOSE
     Route: 065
     Dates: start: 20160423
  7. TACROLIMUS [Interacting]
     Active Substance: TACROLIMUS
     Dosage: 9 MG, TOTAL DAILY DOSE
     Route: 065
     Dates: start: 20160527
  8. TACROLIMUS [Interacting]
     Active Substance: TACROLIMUS
     Dosage: 7 MG, TOTAL DAILY DOSE
     Route: 065
     Dates: start: 20160701
  9. TACROLIMUS [Interacting]
     Active Substance: TACROLIMUS
     Dosage: 6.5 MG, TOTAL DAILY DOSE
     Route: 065
     Dates: start: 20160705
  10. TACROLIMUS [Interacting]
     Active Substance: TACROLIMUS
     Dosage: 7.5 MG, TOTAL DAILY DOSE
     Route: 065
     Dates: start: 20160709
  11. TACROLIMUS [Interacting]
     Active Substance: TACROLIMUS
     Dosage: 7 MG, TOTAL DAILY DOSE
     Route: 065
     Dates: start: 20161119
  12. TACROLIMUS [Interacting]
     Active Substance: TACROLIMUS
     Dosage: 6 MG, TOTAL DAILY DOSE
     Route: 065
     Dates: start: 20161123
  13. TACROLIMUS [Interacting]
     Active Substance: TACROLIMUS
     Dosage: 7 MG, TOTAL DAILY DOSE
     Route: 065
     Dates: start: 20161217
  14. TACROLIMUS [Interacting]
     Active Substance: TACROLIMUS
     Dosage: 8 MG, TOTAL DAILY DOSE
     Route: 065
     Dates: start: 20170614
  15. TACROLIMUS [Interacting]
     Active Substance: TACROLIMUS
     Dosage: 7 MG, TOTAL DAILY DOSE
     Route: 065
     Dates: start: 20180613
  16. TACROLIMUS [Interacting]
     Active Substance: TACROLIMUS
     Dosage: 4.5 MG, TOTAL DAILY DOSE
     Route: 065
     Dates: start: 20191015
  17. TACROLIMUS [Interacting]
     Active Substance: TACROLIMUS
     Dosage: 4 MG, TOTAL DAILY DOSE
     Route: 065
     Dates: start: 20200228
  18. TACROLIMUS [Interacting]
     Active Substance: TACROLIMUS
     Dosage: 4 MG, TOTAL DAILY DOSE
     Route: 065
     Dates: start: 20210215
  19. COLCHICINE [Concomitant]
     Active Substance: COLCHICINE
     Indication: Product used for unknown indication
     Dosage: UNK UNK, UNKNOWN FREQ.
     Route: 065

REACTIONS (3)
  - Myalgia [Recovered/Resolved]
  - Abdominal pain [Recovered/Resolved]
  - Drug interaction [Unknown]

NARRATIVE: CASE EVENT DATE: 20191231
